FAERS Safety Report 7200822-8 (Version None)
Quarter: 2010Q4

REPORT INFORMATION
  Report Type: 
  Country: None (occurrence: None)
  Receive Date: 20101228
  Receipt Date: 20101222
  Transmission Date: 20110411
  Serious: Yes (Other)
  Sender: FDA-Public Use
  Company Number: US-PFIZER INC-2009278662

PATIENT
  Sex: Male
  Weight: 88 kg

DRUGS (11)
  1. CHANTIX [Suspect]
     Indication: SMOKING CESSATION THERAPY
     Dosage: 0.5 MG, 1X/DAY
     Route: 048
     Dates: start: 20090707, end: 20090701
  2. TRAZODONE HYDROCHLORIDE [Concomitant]
     Indication: SLEEP DISORDER
     Dosage: 50 MG, DAILY
  3. ZOLPIDEM TARTRATE [Concomitant]
     Indication: SLEEP DISORDER
  4. LORAZEPAM [Concomitant]
     Dosage: 1 MG, 2X/DAY
     Dates: start: 20091001
  5. NEURONTIN [Concomitant]
     Dosage: 300 MG, 3X/DAY
  6. FISH OIL [Concomitant]
     Dosage: 300 MG, 3X/DAY
  7. VITAMIN B COMPLEX [Concomitant]
  8. VICOPROFEN [Concomitant]
  9. CHONDROITIN/GLUCOSAMINE [Concomitant]
  10. LEXAPRO [Concomitant]
     Route: 048
  11. NORTRIPTYLINE [Concomitant]
     Dosage: 25 MG, UNK

REACTIONS (5)
  - ARTHRALGIA [None]
  - DEPRESSION [None]
  - DIABETES MELLITUS [None]
  - NEURITIS [None]
  - NEUROPATHY PERIPHERAL [None]
